FAERS Safety Report 23735155 (Version 1)
Quarter: 2024Q2

REPORT INFORMATION
  Report Type: Report from Study
  Country: US (occurrence: None)
  Receive Date: 20240412
  Receipt Date: 20240412
  Transmission Date: 20240716
  Serious: Yes (Death)
  Sender: FDA-Public Use
  Company Number: 2020SF31953

PATIENT
  Age: 27952 Day
  Sex: Female

DRUGS (1)
  1. BRILINTA [Suspect]
     Active Substance: TICAGRELOR
     Indication: Myocardial infarction
     Route: 048

REACTIONS (3)
  - Fall [Fatal]
  - Brain injury [Fatal]
  - Head injury [Fatal]

NARRATIVE: CASE EVENT DATE: 20201006
